FAERS Safety Report 4527858-X (Version None)
Quarter: 2004Q4

REPORT INFORMATION
  Report Type: 
  Country: None (occurrence: None)
  Receive Date: 20041123
  Receipt Date: 20040910
  Transmission Date: 20050328
  Serious: Yes (Hospitalization)
  Sender: FDA-Public Use
  Company Number: ATO-04-0813

PATIENT
  Age: 53 Year
  Sex: Female
  Weight: 94.3482 kg

DRUGS (2)
  1. TRISENOX [Suspect]
     Indication: MULTIPLE MYELOMA
     Dosage: 23.7 MG (0.25 MG/KG), IVI
     Dates: start: 20040223, end: 20040409
  2. THALIDOMIDE [Suspect]
     Indication: MULTIPLE MYELOMA
     Dosage: 200 MG (200 MG), ORAL
     Route: 048
     Dates: start: 20040223, end: 20040409

REACTIONS (3)
  - FEBRILE NEUTROPENIA [None]
  - PNEUMONIA [None]
  - RENAL FAILURE [None]
